FAERS Safety Report 12987042 (Version 2)
Quarter: 2016Q4

REPORT INFORMATION
  Report Type: Spontaneous
  Country: SK (occurrence: SK)
  Receive Date: 20161130
  Receipt Date: 20161221
  Transmission Date: 20170207
  Serious: Yes (Other)
  Sender: FDA-Public Use
  Company Number: SK-AMGEN-SVKSP2016168330

PATIENT
  Age: 78 Year
  Sex: Female
  Weight: 50 kg

DRUGS (3)
  1. HYDROCHLOROTHIAZIDE. [Concomitant]
     Active Substance: HYDROCHLOROTHIAZIDE
     Dosage: 25 MG, QD
     Dates: start: 20150625
  2. PROLIA [Suspect]
     Active Substance: DENOSUMAB
     Indication: OSTEOPOROSIS POSTMENOPAUSAL
     Dosage: 60 MG/ML, Q6MO
     Route: 058
     Dates: start: 20110406, end: 20160527
  3. RAVEL [Concomitant]
     Dosage: UNK
     Dates: start: 20150623

REACTIONS (4)
  - Forearm fracture [Unknown]
  - Osteonecrosis of jaw [Recovered/Resolved]
  - Tooth extraction [Unknown]
  - Fall [Unknown]

NARRATIVE: CASE EVENT DATE: 201301
